FAERS Safety Report 4277726-6 (Version None)
Quarter: 2004Q1

REPORT INFORMATION
  Report Type: 
  Country: None (occurrence: None)
  Receive Date: 20040121
  Receipt Date: 20040107
  Transmission Date: 20041129
  Serious: Yes (Disabling)
  Sender: FDA-Public Use
  Company Number: 2004EU000049

PATIENT
  Age: 1 Year
  Sex: Male

DRUGS (3)
  1. PROGRAF [Suspect]
     Indication: LIVER TRANSPLANT
     Dosage: 2.8 MG, ORAL
     Route: 048
     Dates: start: 20030927
  2. VFEND [Suspect]
     Dosage: 80 MG, ORAL
     Route: 048
     Dates: start: 20031001, end: 20031203
  3. SINTROM [Suspect]
     Dosage: ORAL
     Route: 048
     Dates: start: 20030928

REACTIONS (2)
  - DRUG INTERACTION [None]
  - DRUG LEVEL INCREASED [None]
